FAERS Safety Report 4411027-8 (Version None)
Quarter: 2004Q3

REPORT INFORMATION
  Report Type: 
  Country: None (occurrence: None)
  Receive Date: 20040726
  Receipt Date: 20040722
  Transmission Date: 20050211
  Serious: Yes (Hospitalization, Other)
  Sender: FDA-Public Use
  Company Number: 04-07-1055

PATIENT
  Age: 92 Year
  Sex: Female

DRUGS (2)
  1. CLOZAPINE [Suspect]
     Indication: DEMENTIA
     Dosage: 200-300MG QD ORAL
     Route: 048
     Dates: start: 20011101, end: 20040701
  2. CLOZAPINE [Suspect]
     Indication: SCHIZOPHRENIA
     Dosage: 200-300MG QD ORAL
     Route: 048
     Dates: start: 20011101, end: 20040701

REACTIONS (4)
  - ASPIRATION [None]
  - PNEUMONIA [None]
  - WHITE BLOOD CELL COUNT DECREASED [None]
  - WHITE BLOOD CELL COUNT INCREASED [None]
